FAERS Safety Report 20370222 (Version 1)
Quarter: 2022Q1

REPORT INFORMATION
  Report Type: Spontaneous
  Country: US (occurrence: None)
  Receive Date: 20220122
  Receipt Date: 20220122
  Transmission Date: 20220423
  Serious: Yes (Life-Threatening, Hospitalization)
  Sender: FDA-Public Use
  Company Number: None

PATIENT
  Age: 75 Year
  Sex: Male
  Weight: 74.25 kg

DRUGS (1)
  1. FARXIGA [Suspect]
     Active Substance: DAPAGLIFLOZIN PROPANEDIOL
     Indication: Type 2 diabetes mellitus
     Dosage: OTHER QUANTITY : 85 TABLET(S);?
     Route: 048
     Dates: start: 20211102

REACTIONS (3)
  - Cerebrovascular accident [None]
  - Family stress [None]
  - Economic problem [None]

NARRATIVE: CASE EVENT DATE: 20220102
